FAERS Safety Report 20759705 (Version 2)
Quarter: 2022Q2

REPORT INFORMATION
  Report Type: Report from Study
  Country: US (occurrence: None)
  Receive Date: 20220427
  Receipt Date: 20220502
  Transmission Date: 20220721
  Serious: Yes (Hospitalization)
  Sender: FDA-Public Use
  Company Number: US-ROCHE-2759185

PATIENT
  Age: 76 Year
  Sex: Male
  Weight: 97 kg

DRUGS (10)
  1. ATEZOLIZUMAB [Suspect]
     Active Substance: ATEZOLIZUMAB
     Indication: Renal cell carcinoma
     Dosage: ON 20/NOV/2020, MOST RECENT DOSE OF ATEZOLIZUMAB PRIOR TO THE EVENT.
     Route: 042
     Dates: start: 20190503, end: 20201211
  2. CABOZANTINIB [Suspect]
     Active Substance: CABOZANTINIB
     Indication: Renal cell carcinoma
     Dosage: ON 12/NOV/2020, MOST RECENT DOSE OF CABOZANTINIB PRIOR TO THE EVENT.
     Route: 048
     Dates: start: 20190503
  3. CABOZANTINIB [Suspect]
     Active Substance: CABOZANTINIB
     Route: 048
  4. LOVENOX [Concomitant]
     Active Substance: ENOXAPARIN SODIUM
     Indication: Pulmonary embolism
  5. ADVAIR HFA [Concomitant]
     Active Substance: FLUTICASONE PROPIONATE\SALMETEROL XINAFOATE
  6. SYNTHROID [Concomitant]
     Active Substance: LEVOTHYROXINE SODIUM
  7. COZAAR [Concomitant]
     Active Substance: LOSARTAN POTASSIUM
  8. NASONEX [Concomitant]
     Active Substance: MOMETASONE FUROATE
  9. MUCINEX [Concomitant]
     Active Substance: GUAIFENESIN
  10. ASPIRIN [Concomitant]
     Active Substance: ASPIRIN

REACTIONS (3)
  - Subdural haematoma [Recovered/Resolved]
  - Weight decreased [Recovering/Resolving]
  - Adrenal insufficiency [Not Recovered/Not Resolved]

NARRATIVE: CASE EVENT DATE: 20201008
